FAERS Safety Report 7473546-X (Version None)
Quarter: 2011Q2

REPORT INFORMATION
  Report Type: 
  Country: None (occurrence: None)
  Receive Date: 20110511
  Receipt Date: 20110503
  Transmission Date: 20111010
  Serious: Yes (Death, Hospitalization)
  Sender: FDA-Public Use
  Company Number: AU-MERCK-1103USA03630

PATIENT
  Age: 74 Year
  Sex: Male
  Weight: 70 kg

DRUGS (5)
  1. LIPITOR [Concomitant]
     Route: 065
  2. ZOLINZA [Suspect]
     Indication: MYCOSIS FUNGOIDES
     Route: 048
     Dates: start: 20101223, end: 20110106
  3. ZOLINZA [Suspect]
     Route: 048
     Dates: start: 20110125, end: 20110210
  4. BACTRIM [Concomitant]
     Route: 065
  5. ALLOPURINOL [Concomitant]
     Route: 065

REACTIONS (2)
  - DEATH [None]
  - HYPERCALCAEMIA [None]
